FAERS Safety Report 15953549 (Version 3)
Quarter: 2019Q1

REPORT INFORMATION
  Report Type: Report from Study
  Country: US (occurrence: US)
  Receive Date: 20190213
  Receipt Date: 20190303
  Transmission Date: 20190417
  Serious: Yes (Hospitalization, Other)
  Sender: FDA-Public Use
  Company Number: US-BRISTOL-MYERS SQUIBB COMPANY-BMS-2019-013730

PATIENT
  Age: 64 Year
  Sex: Female
  Weight: 77.7 kg

DRUGS (3)
  1. NIVOLUMAB [Suspect]
     Active Substance: NIVOLUMAB
     Indication: SARCOMA
     Dosage: UNK
     Route: 042
     Dates: start: 20171220
  2. NIVOLUMAB [Suspect]
     Active Substance: NIVOLUMAB
     Indication: PRODUCT USED FOR UNKNOWN INDICATION
     Dosage: 678.6 MG, UNK
     Route: 042
     Dates: start: 20190116
  3. IPILIMUMAB [Suspect]
     Active Substance: IPILIMUMAB
     Indication: SARCOMA
     Dosage: UNK
     Route: 042
     Dates: end: 20180222

REACTIONS (1)
  - Papilloedema [Recovering/Resolving]

NARRATIVE: CASE EVENT DATE: 20190124
